FAERS Safety Report 21042795 (Version 1)
Quarter: 2022Q3

REPORT INFORMATION
  Report Type: Spontaneous
  Country: US (occurrence: None)
  Receive Date: 20220704
  Receipt Date: 20220704
  Transmission Date: 20221027
  Serious: Yes (Other)
  Sender: FDA-Public Use
  Company Number: None

PATIENT
  Age: 66 Year
  Sex: Female
  Weight: 99 kg

DRUGS (1)
  1. PAXLOVID [Suspect]
     Active Substance: NIRMATRELVIR\RITONAVIR
     Indication: COVID-19
     Dosage: FREQUENCY : TWICE A DAY;?
     Route: 048
     Dates: start: 20220621, end: 20220626

REACTIONS (7)
  - COVID-19 [None]
  - Fatigue [None]
  - Pyrexia [None]
  - Headache [None]
  - Nasopharyngitis [None]
  - SARS-CoV-2 test positive [None]
  - Gastrointestinal disorder [None]

NARRATIVE: CASE EVENT DATE: 20220701
